FAERS Safety Report 6055875-X (Version None)
Quarter: 2009Q1

REPORT INFORMATION
  Report Type: 
  Country: None (occurrence: None)
  Receive Date: 20090126
  Receipt Date: 20090123
  Transmission Date: 20090719
  Serious: Yes (Hospitalization)
  Sender: FDA-Public Use
  Company Number: GRT 2007-14643

PATIENT
  Age: 55 Year
  Sex: Female
  Weight: 75 kg

DRUGS (3)
  1. LIDOCAINE [Suspect]
     Indication: POST HERPETIC NEURALGIA
     Dosage: 0-1/2 PATCHES A DAY
     Dates: start: 20040405, end: 20070613
  2. ZYRTEC [Concomitant]
  3. BISOPROLOL FUMARATE [Concomitant]

REACTIONS (5)
  - DIVERTICULITIS [None]
  - ENDOMETRIOSIS [None]
  - INTESTINAL STOMA [None]
  - POSTOPERATIVE ILEUS [None]
  - UROGENITAL FISTULA [None]
